FAERS Safety Report 5228623-0 (Version None)
Quarter: 2007Q1

REPORT INFORMATION
  Report Type: 
  Country: None (occurrence: None)
  Receive Date: 20070205
  Receipt Date: 20070123
  Transmission Date: 20070707
  Serious: Yes (Hospitalization)
  Sender: FDA-Public Use
  Company Number: FR-NOVOPROD-260273

PATIENT
  Age: 60 Year
  Sex: Male

DRUGS (6)
  1. NOVONORM [Suspect]
     Indication: DIABETES MELLITUS NON-INSULIN-DEPENDENT
     Dosage: 3 MG, QD
     Route: 048
     Dates: start: 20061208
  2. APROVEL [Concomitant]
     Indication: HYPERTENSION
     Dosage: 20 MG, QD
     Route: 048
     Dates: start: 20061118
  3. PREVISCAN [Concomitant]
     Indication: COAGULOPATHY
     Dosage: 20 MG, QD
     Route: 048
     Dates: start: 20061118
  4. ZYLORIC [Concomitant]
     Indication: GOUT
     Dosage: 200 MG, QD
     Route: 048
     Dates: start: 20061116
  5. LEXOMIL [Concomitant]
     Indication: ANXIETY
     Dosage: 6 MG, QD
     Route: 048
     Dates: start: 20061116
  6. SEROPRAM                           /00582602/ [Concomitant]
     Indication: DEPRESSION
     Dosage: 40 MG, QD
     Route: 048
     Dates: start: 20061116

REACTIONS (2)
  - FALL [None]
  - HYPOGLYCAEMIA [None]
